FAERS Safety Report 7398072-8 (Version None)
Quarter: 2011Q2

REPORT INFORMATION
  Report Type: 
  Country: None (occurrence: None)
  Receive Date: 20110406
  Receipt Date: 20110331
  Transmission Date: 20111010
  Serious: Yes (Hospitalization, Disabling)
  Sender: FDA-Public Use
  Company Number: JP-ABBOTT-11P-087-0716671-00

PATIENT
  Age: 84 Year
  Sex: Male

DRUGS (1)
  1. LEUPLIN SR FOR INJECTION 11.25 [Suspect]
     Indication: PROSTATE CANCER
     Route: 058

REACTIONS (3)
  - INJECTION SITE NECROSIS [None]
  - INJECTION SITE ERYTHEMA [None]
  - INJECTION SITE ABSCESS [None]
